FAERS Safety Report 8740582 (Version 2)
Quarter: 2013Q4

REPORT INFORMATION
  Report Type: Spontaneous
  Country: US (occurrence: US)
  Receive Date: 20120823
  Receipt Date: 20131101
  Transmission Date: 20140711
  Serious: No
  Sender: FDA-Public Use
  Company Number: US-009507513-1208USA008639

PATIENT
  Age: 72 Year
  Sex: Male

DRUGS (3)
  1. SAPHRIS [Suspect]
     Indication: SCHIZOPHRENIA
     Dosage: 5 MG, BID
     Route: 060
     Dates: start: 201208
  2. ABILIFY [Concomitant]
     Dosage: UNK
  3. TRILAFON (PERPHENAZINE DECANOATE) [Concomitant]
     Dosage: UNK
     Dates: end: 201208

REACTIONS (1)
  - Psychotic disorder [Recovered/Resolved]
